FAERS Safety Report 4437097-9 (Version None)
Quarter: 2004Q3

REPORT INFORMATION
  Report Type: 
  Country: None (occurrence: None)
  Receive Date: 20040830
  Receipt Date: 20040825
  Transmission Date: 20050211
  Serious: Yes (Death)
  Sender: FDA-Public Use
  Company Number: US-BRISTOL-MYERS SQUIBB COMPANY-12683264

PATIENT

DRUGS (2)
  1. GLUCOPHAGE [Suspect]
  2. OMNIPAQUE 240 [Concomitant]

REACTIONS (1)
  - MYOCARDIAL INFARCTION [None]
